FAERS Safety Report 13044219 (Version 1)
Quarter: 2016Q4

REPORT INFORMATION
  Report Type: Spontaneous
  Country: US (occurrence: US)
  Receive Date: 20161220
  Receipt Date: 20161220
  Transmission Date: 20170207
  Serious: No
  Sender: FDA-Public Use
  Company Number: US-ROCHE-1031889

PATIENT
  Sex: Male

DRUGS (1)
  1. ZELBORAF [Suspect]
     Active Substance: VEMURAFENIB
     Indication: PRODUCT USED FOR UNKNOWN INDICATION

REACTIONS (13)
  - Pruritus [Unknown]
  - Nausea [Unknown]
  - Alopecia [Unknown]
  - Oropharyngeal pain [Unknown]
  - Diarrhoea [Unknown]
  - Rash [Unknown]
  - Dysgeusia [Unknown]
  - Arthralgia [Unknown]
  - Sunburn [Unknown]
  - Otitis externa [Unknown]
  - Decreased appetite [Unknown]
  - Fatigue [Unknown]
  - Visual impairment [Unknown]
